FAERS Safety Report 9932535 (Version 1)
Quarter: 2014Q1

REPORT INFORMATION
  Report Type: Spontaneous
  Country: US (occurrence: US)
  Receive Date: 20140228
  Receipt Date: 20140228
  Transmission Date: 20141002
  Serious: No
  Sender: FDA-Public Use
  Company Number: US-ABBVIE-13P-163-1177112-00

PATIENT
  Age: 67 Year
  Sex: Male

DRUGS (1)
  1. ANDROGEL [Suspect]
     Indication: BLOOD TESTOSTERONE DECREASED
     Route: 061
     Dates: start: 2011, end: 201309

REACTIONS (2)
  - Application site hypoaesthesia [Not Recovered/Not Resolved]
  - Application site paraesthesia [Not Recovered/Not Resolved]
